FAERS Safety Report 9866892 (Version 1)
Quarter: 2014Q1

REPORT INFORMATION
  Report Type: Spontaneous
  Country: US (occurrence: None)
  Receive Date: 20140131
  Receipt Date: 20140131
  Transmission Date: 20141002
  Serious: Yes (Hospitalization)
  Sender: FDA-Public Use
  Company Number: 152502

PATIENT
  Age: 33 Year
  Sex: Female

DRUGS (1)
  1. NOREPINEPHRINE BITARTRATE [Suspect]
     Indication: SHOCK
     Dosage: 0.2UG/KG/MIN ON DAY 5 INCREASED TO 1.2UG/KG/MIN ON DAY 6 THERAPY DATES  UNK  THERAPY DATES

REACTIONS (4)
  - Cardiogenic shock [None]
  - Pulmonary oedema [None]
  - Left ventricular dysfunction [None]
  - Respiratory failure [None]
